FAERS Safety Report 7391562-3 (Version None)
Quarter: 2011Q2

REPORT INFORMATION
  Report Type: 
  Country: None (occurrence: None)
  Receive Date: 20110404
  Receipt Date: 20110321
  Transmission Date: 20111010
  Serious: Yes (Other)
  Sender: FDA-Public Use
  Company Number: PHHY2011US23268

PATIENT
  Sex: Female

DRUGS (3)
  1. DIURETICS [Concomitant]
     Dosage: UNK
  2. INHALER [Concomitant]
     Dosage: UNK
  3. TEKTURNA [Suspect]
     Dosage: 150 MG, QD

REACTIONS (3)
  - DYSPHONIA [None]
  - EYE DISORDER [None]
  - BLINDNESS [None]
